FAERS Safety Report 9202422 (Version 2)
Quarter: 2013Q2

REPORT INFORMATION
  Report Type: Report from Study
  Country: FR (occurrence: FR)
  Receive Date: 20130401
  Receipt Date: 20130403
  Transmission Date: 20140414
  Serious: Yes (Death, Hospitalization)
  Sender: FDA-Public Use
  Company Number: PHHO2013FR004411

PATIENT
  Sex: 0

DRUGS (18)
  1. IMATINIB [Suspect]
     Indication: ACUTE LYMPHOCYTIC LEUKAEMIA
     Dosage: 300 MG, QD
     Route: 048
     Dates: start: 20130107, end: 20130322
  2. ENDOXAN [Concomitant]
     Dosage: 960 MG, QD
     Route: 042
     Dates: start: 20130316
  3. ARACYTINE [Concomitant]
     Dosage: 72.5 MG, BID
     Route: 042
     Dates: start: 20130318, end: 20130321
  4. METHOTREXATE [Concomitant]
     Dosage: 12 MG, QD
     Dates: start: 20130318, end: 20130318
  5. METHOTREXATE [Concomitant]
     Dosage: 12 MG, UNK
     Dates: start: 20130318
  6. METHYLPREDNISOLONE [Concomitant]
     Dosage: 15.2 MG, QD
     Dates: start: 20130318, end: 20130318
  7. FLAGYL [Concomitant]
     Indication: ANTIBIOTIC THERAPY
     Dosage: 360 MG, Q8H
     Route: 042
     Dates: start: 20130323
  8. AMOXIPLUS [Concomitant]
     Indication: ANTIBIOTIC THERAPY
     Dosage: 405 MG, QD
     Route: 042
     Dates: start: 20130322, end: 20130323
  9. VANCO [Concomitant]
     Indication: ANTIBIOTIC THERAPY
     Dosage: 1.35 G, QD
     Route: 042
     Dates: start: 20130322, end: 20130323
  10. SPASFON [Concomitant]
     Indication: MUSCLE SPASMS
     Dosage: UNK
     Dates: start: 20130316
  11. VORICONAZOLE [Concomitant]
     Indication: ANTIFUNGAL TREATMENT
     Dosage: 200 MG, BID
     Route: 048
     Dates: start: 20130312, end: 20130322
  12. ORAMORPH [Concomitant]
     Dosage: 10 MG, UNK
     Route: 048
     Dates: start: 20130318
  13. NEXIUM I.V. [Concomitant]
     Indication: GASTROOESOPHAGEAL REFLUX DISEASE
     Dosage: 20 MG, IV/SC
     Dates: start: 20130305, end: 20130322
  14. PLITICAN [Concomitant]
     Dosage: 25 MG, UNK
     Dates: end: 20130322
  15. ZOFRAN [Concomitant]
     Indication: NAUSEA
     Dosage: 8 MG, QD
     Dates: start: 20130313, end: 20130322
  16. UROMITEXAN [Concomitant]
     Indication: URINARY TRACT DISORDER
     Dosage: 400 MG, UNK
     Route: 042
     Dates: start: 20130316, end: 20130316
  17. LARGACTIL [Concomitant]
     Indication: PAIN
     Dosage: 13 MG, UNK
     Dates: start: 20130318, end: 20130321
  18. ATOVAQUONE [Concomitant]
     Dosage: 375 MG, BID
     Route: 048
     Dates: start: 20130205, end: 20130322

REACTIONS (2)
  - Cardiac failure [Fatal]
  - Sepsis [Fatal]
